FAERS Safety Report 4827726-X (Version None)
Quarter: 2005Q4

REPORT INFORMATION
  Report Type: 
  Country: None (occurrence: None)
  Receive Date: 20051114
  Receipt Date: 20051004
  Transmission Date: 20060501
  Serious: Yes (Hospitalization)
  Sender: FDA-Public Use
  Company Number: US-MERCK-0510USA02370

PATIENT
  Age: 70 Year
  Sex: Male
  Weight: 93 kg

DRUGS (3)
  1. VIOXX [Suspect]
     Indication: SPONDYLITIS
     Route: 048
     Dates: start: 20010426
  2. PRILOSEC [Concomitant]
     Route: 065
  3. FIORICET TABLETS [Concomitant]
     Route: 065

REACTIONS (7)
  - DEPRESSION [None]
  - DIVERTICULAR PERFORATION [None]
  - DIVERTICULUM [None]
  - HERNIA [None]
  - MYOCARDIAL INFARCTION [None]
  - PROSTATIC DISORDER [None]
  - TRANSIENT ISCHAEMIC ATTACK [None]
